FAERS Safety Report 6537957-9 (Version None)
Quarter: 2010Q1

REPORT INFORMATION
  Report Type: 
  Country: None (occurrence: None)
  Receive Date: 20100112
  Receipt Date: 20100112
  Transmission Date: 20100710
  Serious: Yes (Hospitalization)
  Sender: FDA-Public Use
  Company Number: None

PATIENT
  Age: 28 Year
  Sex: Female
  Weight: 72.5755 kg

DRUGS (1)
  1. YASMIN [Suspect]
     Indication: ORAL CONTRACEPTION
     Dosage: 1 TABLET 1 X DAILY ORAL
     Route: 048
     Dates: start: 20010101, end: 20040101

REACTIONS (5)
  - ABDOMINAL PAIN UPPER [None]
  - ACNE [None]
  - DYSPNOEA [None]
  - MIGRAINE [None]
  - MOOD SWINGS [None]
